FAERS Safety Report 6842921-6 (Version None)
Quarter: 2010Q3

REPORT INFORMATION
  Report Type: 
  Country: None (occurrence: None)
  Receive Date: 20100714
  Receipt Date: 20070809
  Transmission Date: 20110219
  Serious: No
  Sender: FDA-Public Use
  Company Number: US-PFIZER INC-2007066719

PATIENT
  Sex: Male
  Weight: 102.27 kg

DRUGS (5)
  1. CHANTIX [Suspect]
     Indication: SMOKING CESSATION THERAPY
     Dates: start: 20070801, end: 20070809
  2. VALIUM [Concomitant]
  3. NEXIUM [Concomitant]
  4. OXYCODONE HCL [Concomitant]
  5. DILANTIN [Concomitant]

REACTIONS (3)
  - ABDOMINAL PAIN [None]
  - BODY TEMPERATURE INCREASED [None]
  - HYPERHIDROSIS [None]
